FAERS Safety Report 23296218 (Version 2)
Quarter: 2024Q1

REPORT INFORMATION
  Report Type: Spontaneous
  Country: US (occurrence: US)
  Receive Date: 20231214
  Receipt Date: 20240315
  Transmission Date: 20240410
  Serious: Yes (Other)
  Sender: FDA-Public Use
  Company Number: US-JNJFOC-20231222272

PATIENT
  Sex: Female

DRUGS (1)
  1. ELMIRON [Suspect]
     Active Substance: PENTOSAN POLYSULFATE SODIUM
     Indication: Cystitis interstitial
     Dosage: 100 MG TWICE A DAY
     Route: 048
     Dates: end: 20230620

REACTIONS (3)
  - Maculopathy [Unknown]
  - Retinal pigmentation [Unknown]
  - Off label use [Unknown]
